FAERS Safety Report 8014641-6 (Version None)
Quarter: 2011Q4

REPORT INFORMATION
  Report Type: 
  Country: None (occurrence: None)
  Receive Date: 20111229
  Receipt Date: 20111202
  Transmission Date: 20120403
  Serious: No
  Sender: FDA-Public Use
  Company Number: PHHY2011JP103182

PATIENT
  Age: 48 Year
  Sex: Female
  Weight: 60 kg

DRUGS (7)
  1. CARBAMAZEPINE [Suspect]
     Dosage: 300 MG, PER DAY
     Route: 048
  2. PHENYTOIN [Concomitant]
     Dosage: 200 MG/DAY
     Route: 048
  3. CARBAMAZEPINE [Suspect]
     Dosage: 200 MG,PER DAY
     Route: 048
  4. NITRAZEPAM [Concomitant]
     Dosage: 10 MG/DAY
  5. CARBAMAZEPINE [Suspect]
     Indication: GRAND MAL CONVULSION
     Dosage: 200 MG/DAY
     Route: 048
  6. PHENOBARBITAL TAB [Concomitant]
     Dosage: 100 MG/DAY
     Route: 048
  7. PHENYTOIN [Concomitant]
     Dosage: 160 MG,/ DAY
     Route: 048

REACTIONS (1)
  - SOMNOLENCE [None]
